FAERS Safety Report 9323946 (Version 2)
Quarter: 2013Q3

REPORT INFORMATION
  Report Type: Spontaneous
  Country: IT (occurrence: IT)
  Receive Date: 20130603
  Receipt Date: 20130729
  Transmission Date: 20140515
  Serious: Yes (Hospitalization)
  Sender: FDA-Public Use
  Company Number: IT-BRISTOL-MYERS SQUIBB COMPANY-18958355

PATIENT
  Age: 77 Year
  Sex: Male

DRUGS (4)
  1. COUMADIN TABS 5 MG [Suspect]
     Indication: ATRIAL FIBRILLATION
     Dosage: UNITIL 03-MAY-2013
     Route: 048
     Dates: start: 20100101
  2. CARDIOASPIRIN [Suspect]
     Indication: PROPHYLAXIS
     Dosage: 100 MG TAB?UNTIL 03-MAY-2013
     Route: 048
     Dates: start: 20100101
  3. PANTOPRAZOLE SODIUM [Concomitant]
     Dosage: 1DF:1 UNIT
     Route: 048
  4. LASIX [Concomitant]
     Dosage: 25 MG TAB,1DF: 2 UNIT
     Route: 048

REACTIONS (2)
  - International normalised ratio increased [Unknown]
  - Anaemia [Unknown]
